FAERS Safety Report 4591881-X (Version None)
Quarter: 2005Q1

REPORT INFORMATION
  Report Type: 
  Country: None (occurrence: None)
  Receive Date: 20050222
  Receipt Date: 20050207
  Transmission Date: 20050727
  Serious: Yes (Other)
  Sender: FDA-Public Use
  Company Number: HQWYE211010FEB05

PATIENT
  Sex: Male

DRUGS (1)
  1. EFFEXOR XR [Suspect]
     Dosage: SEE IMAGE

REACTIONS (8)
  - AGGRESSION [None]
  - AGITATION [None]
  - BLOOD PRESSURE INCREASED [None]
  - DRUG INEFFECTIVE [None]
  - INTENTIONAL MISUSE [None]
  - PSYCHIATRIC SYMPTOM [None]
  - RESTLESSNESS [None]
  - TREATMENT NONCOMPLIANCE [None]
